FAERS Safety Report 21142089 (Version 2)
Quarter: 2022Q3

REPORT INFORMATION
  Report Type: Report from Study
  Country: CA (occurrence: CA)
  Receive Date: 20220728
  Receipt Date: 20220826
  Transmission Date: 20221027
  Serious: Yes (Hospitalization)
  Sender: FDA-Public Use
  Company Number: CA-GLAXOSMITHKLINE-CA2022109258

PATIENT

DRUGS (2)
  1. DOSTARLIMAB [Suspect]
     Active Substance: DOSTARLIMAB
     Indication: Endometrial cancer
     Dosage: 500 MG EVERY 3 WEEKS DOSE 1-4
     Route: 042
     Dates: start: 20220603
  2. DOSTARLIMAB [Suspect]
     Active Substance: DOSTARLIMAB
     Dosage: 1000 MG EVERY 6 WEEKS
     Route: 042

REACTIONS (2)
  - Hypotension [Not Recovered/Not Resolved]
  - Therapy cessation [Unknown]
